FAERS Safety Report 4433418-1 (Version None)
Quarter: 2004Q3

REPORT INFORMATION
  Report Type: 
  Country: None (occurrence: None)
  Receive Date: 20040824
  Receipt Date: 20040816
  Transmission Date: 20050211
  Serious: Yes (Hospitalization)
  Sender: FDA-Public Use
  Company Number: GB-JNJFOC-20040804742

PATIENT
  Age: 66 Year
  Sex: Female

DRUGS (8)
  1. REMICADE [Suspect]
     Indication: RHEUMATOID ARTHRITIS
     Dosage: INTRAVENOUS
     Route: 042
     Dates: start: 20030210, end: 20030801
  2. METHOTREXATE [Concomitant]
  3. PREDNISOLONE [Concomitant]
  4. ACETAMINOPHEN [Concomitant]
  5. FOLIC ACID [Concomitant]
  6. DIPYRIDAMOLE [Concomitant]
  7. HYDROMELLOSE (HYPROMELLOSE) [Concomitant]
  8. LOSARTAN (LOSARTAN) [Concomitant]

REACTIONS (1)
  - RENAL AMYLOIDOSIS [None]
